FAERS Safety Report 9891857 (Version 2)
Quarter: 2014Q4

REPORT INFORMATION
  Report Type: Spontaneous
  Country: US (occurrence: US)
  Receive Date: 20140212
  Receipt Date: 20141104
  Transmission Date: 20150529
  Serious: Yes (Hospitalization)
  Sender: FDA-Public Use
  Company Number: US-BAYER-2014-021980

PATIENT
  Age: 27 Year
  Sex: Female
  Weight: 74.83 kg

DRUGS (7)
  1. EXFORGE [Concomitant]
     Active Substance: AMLODIPINE BESYLATE\VALSARTAN
     Route: 061
  2. MIRENA [Suspect]
     Active Substance: LEVONORGESTREL
     Indication: CONTRACEPTION
     Dosage: 20 MCG/24HR, CONT
     Route: 015
     Dates: start: 20080918, end: 20100723
  3. VALSARTAN. [Concomitant]
     Active Substance: VALSARTAN
     Route: 048
  4. AMLODIPINE [Concomitant]
     Active Substance: AMLODIPINE BESYLATE
     Route: 048
  5. DIAMOX SEQUELS [Concomitant]
     Active Substance: ACETAZOLAMIDE
     Indication: MIGRAINE
  6. SYSTANE [MACROGOL,PROPYLENE GLYCOL] [Concomitant]
     Route: 061
  7. INDAPAMIDE. [Concomitant]
     Active Substance: INDAPAMIDE
     Route: 048

REACTIONS (8)
  - Injury [Recovering/Resolving]
  - Vision blurred [Recovering/Resolving]
  - Papilloedema [Recovering/Resolving]
  - Intracranial pressure increased [None]
  - Migraine [Recovering/Resolving]
  - Benign intracranial hypertension [Recovering/Resolving]
  - Pain [Recovering/Resolving]
  - Diplopia [Recovering/Resolving]

NARRATIVE: CASE EVENT DATE: 20100615
